FAERS Safety Report 10431385 (Version 1)
Quarter: 2014Q3

REPORT INFORMATION
  Report Type: Spontaneous
  Country: US (occurrence: US)
  Receive Date: 20140904
  Receipt Date: 20140904
  Transmission Date: 20150326
  Serious: Yes (Other)
  Sender: FDA-Public Use
  Company Number: US-GLAXOSMITHKLINE-A1081080A

PATIENT
  Age: 75 Year
  Sex: Female

DRUGS (22)
  1. NEXIUM [Concomitant]
     Active Substance: ESOMEPRAZOLE MAGNESIUM
  2. DOXEPIN [Concomitant]
     Active Substance: DOXEPIN
  3. INFLUENZA VACCINE UNSPECIFIED 2011-12 SEASON [Concomitant]
     Active Substance: INFLUENZA VIRUS VACCINE
     Dates: start: 20110921
  4. INFLUENZA VACCINE UNSPECIFIED 2012-13 SEASON [Concomitant]
     Active Substance: INFLUENZA VIRUS VACCINE
     Dates: start: 20121010
  5. SONATA [Concomitant]
     Active Substance: ZALEPLON
  6. CETAPHIL [Concomitant]
     Active Substance: AVOBENZONE\OCTOCRYLENE\TRICLOSAN
  7. INFLUENZA VACCINE UNSPECIFIED [Concomitant]
     Active Substance: UNSPECIFIED INGREDIENT
     Dates: start: 20080915
  8. INFLUENZA VACCINE UNSPECIFIED 2013-2014 SEASON [Concomitant]
     Active Substance: INFLUENZA VIRUS VACCINE
     Dates: start: 20130927
  9. DEBROX [Concomitant]
     Active Substance: CARBAMIDE PEROXIDE
  10. SIMVASTATIN. [Concomitant]
     Active Substance: SIMVASTATIN
  11. FISH OIL [Concomitant]
     Active Substance: FISH OIL
  12. INFLUENZA VACCINE UNSPECIFIED [Concomitant]
     Active Substance: UNSPECIFIED INGREDIENT
     Dates: start: 20101013
  13. BOOSTRIX [Concomitant]
     Active Substance: TETANUS TOXOID, REDUCED DIPHTHERIA TOXOID AND ACELLULAR PERTUSSIS VACCINE, ADSORBED ANTIGENS
     Dates: start: 20130126
  14. METOPROLOL [Concomitant]
     Active Substance: METOPROLOL
  15. VITAMIN D [Concomitant]
     Active Substance: CHOLECALCIFEROL
  16. ADVAIR HFA [Suspect]
     Active Substance: FLUTICASONE PROPIONATE\SALMETEROL XINAFOATE
     Indication: CHRONIC OBSTRUCTIVE PULMONARY DISEASE
     Dosage: 1PUFF TWICE PER DAY
     Route: 055
     Dates: start: 2007
  17. CELEBREX [Concomitant]
     Active Substance: CELECOXIB
  18. LEVOTHYROXINE SODIUM. [Concomitant]
     Active Substance: LEVOTHYROXINE SODIUM
  19. CALCIUM PLUS D [Concomitant]
     Active Substance: CALCIUM\VITAMIN D
  20. INFLUENZA VACCINE UNSPECIFIED [Concomitant]
     Active Substance: UNSPECIFIED INGREDIENT
     Dates: start: 20011023
  21. DOXEPIN HCL [Concomitant]
     Active Substance: DOXEPIN HYDROCHLORIDE
  22. WARFARIN [Concomitant]
     Active Substance: WARFARIN

REACTIONS (38)
  - Transient ischaemic attack [Not Recovered/Not Resolved]
  - Palpitations [Unknown]
  - Chest pain [Unknown]
  - Vertigo [Unknown]
  - Antiphospholipid syndrome [Unknown]
  - Vitamin D deficiency [Unknown]
  - Actinic keratosis [Unknown]
  - Presyncope [Unknown]
  - Hypothyroidism [Unknown]
  - Pulmonary embolism [Unknown]
  - Deep vein thrombosis [Unknown]
  - Visual impairment [Unknown]
  - Spondylitis [Unknown]
  - Biopsy artery [Unknown]
  - Dyspnoea [Unknown]
  - Large intestine polyp [Unknown]
  - Fibromyalgia [Unknown]
  - Neoplasm skin [Unknown]
  - Dyslipidaemia [Unknown]
  - Circulating anticoagulant [Unknown]
  - Carotid artery stenosis [Unknown]
  - Essential hypertension [Unknown]
  - Arthralgia [Unknown]
  - Haemorrhagic disorder [Unknown]
  - Subarachnoid haemorrhage [Unknown]
  - Chronic obstructive pulmonary disease [Unknown]
  - Renal failure chronic [Unknown]
  - Osteoarthritis [Unknown]
  - Chest discomfort [Unknown]
  - Drug ineffective [Unknown]
  - Product quality issue [Unknown]
  - Chest pain [Unknown]
  - Connective tissue disorder [Unknown]
  - Craniocerebral injury [Unknown]
  - Peripheral venous disease [Unknown]
  - Sjogren^s syndrome [Unknown]
  - Hypergammaglobulinaemia benign monoclonal [Unknown]
  - Musculoskeletal chest pain [Unknown]

NARRATIVE: CASE EVENT DATE: 20090120
